FAERS Safety Report 6837335-9 (Version None)
Quarter: 2010Q3

REPORT INFORMATION
  Report Type: 
  Country: None (occurrence: None)
  Receive Date: 20100713
  Receipt Date: 20070509
  Transmission Date: 20110219
  Serious: No
  Sender: FDA-Public Use
  Company Number: US-PFIZER INC-2007038567

PATIENT
  Sex: Male
  Weight: 129 kg

DRUGS (10)
  1. CHANTIX [Suspect]
     Indication: SMOKING CESSATION THERAPY
     Dates: start: 20070501
  2. XANAX [Concomitant]
  3. METFORMIN [Concomitant]
  4. ACTOS [Concomitant]
  5. IBUPROFEN [Concomitant]
  6. NORVASC [Concomitant]
  7. VALSARTAN [Concomitant]
  8. NICOTINE [Concomitant]
     Indication: SMOKING CESSATION THERAPY
  9. ZYBAN [Concomitant]
     Indication: SMOKING CESSATION THERAPY
  10. WELLBUTRIN [Concomitant]
     Indication: SMOKING CESSATION THERAPY

REACTIONS (1)
  - DRUG INEFFECTIVE [None]
